FAERS Safety Report 22018986 (Version 6)
Quarter: 2025Q1

REPORT INFORMATION
  Report Type: Report from Study
  Country: BR (occurrence: BR)
  Receive Date: 20230222
  Receipt Date: 20250215
  Transmission Date: 20250408
  Serious: Yes (Other)
  Sender: CELLTRION
  Company Number: BR-CELLTRION INC.-2023BR003548

PATIENT

DRUGS (3)
  1. INFLIXIMAB-DYYB [Suspect]
     Active Substance: INFLIXIMAB-DYYB
     Indication: Psoriatic arthropathy
     Route: 042
     Dates: start: 20220927
  2. LEFLUNOMIDE [Concomitant]
     Active Substance: LEFLUNOMIDE
     Indication: Psoriatic arthropathy
     Route: 048
     Dates: start: 202301
  3. MUPIROCIN [Concomitant]
     Active Substance: MUPIROCIN

REACTIONS (12)
  - Pyoderma gangrenosum [Unknown]
  - Furuncle [Unknown]
  - Cellulitis [Unknown]
  - Secretion discharge [Recovering/Resolving]
  - Symptom recurrence [Unknown]
  - Skin disorder [Unknown]
  - Pain [Unknown]
  - Psoriasis [Unknown]
  - Ear infection [Unknown]
  - Drug ineffective [Unknown]
  - Intentional dose omission [Unknown]
  - Product availability issue [Unknown]

NARRATIVE: CASE EVENT DATE: 20230201
